FAERS Safety Report 11086312 (Version 1)
Quarter: 2015Q2

REPORT INFORMATION
  Report Type: Spontaneous
  Country: US (occurrence: US)
  Receive Date: 20150504
  Receipt Date: 20150504
  Transmission Date: 20150821
  Serious: No
  Sender: FDA-Public Use
  Company Number: US-ASTRAZENECA-2015SE40952

PATIENT
  Age: 44 Year
  Sex: Male
  Weight: 89 kg

DRUGS (9)
  1. NEXIUM 24HR [Suspect]
     Active Substance: ESOMEPRAZOLE MAGNESIUM
     Indication: GASTROOESOPHAGEAL REFLUX DISEASE
     Route: 048
     Dates: start: 20150411, end: 20150414
  2. NEXIUM 24HR [Suspect]
     Active Substance: ESOMEPRAZOLE MAGNESIUM
     Indication: ABDOMINAL DISTENSION
     Route: 048
     Dates: start: 20150411, end: 20150414
  3. NEXIUM 24HR [Suspect]
     Active Substance: ESOMEPRAZOLE MAGNESIUM
     Indication: FLATULENCE
     Route: 048
     Dates: start: 20150411, end: 20150414
  4. OMEPRAZOLE. [Concomitant]
     Active Substance: OMEPRAZOLE
     Indication: ACID BASE BALANCE
     Route: 048
  5. OMEPRAZOLE. [Concomitant]
     Active Substance: OMEPRAZOLE
     Indication: ABDOMINAL DISTENSION
     Route: 048
  6. OMEPRAZOLE. [Concomitant]
     Active Substance: OMEPRAZOLE
     Indication: ABDOMINAL DISTENSION
     Dosage: 20 MG, UNK
     Route: 048
  7. TUMS [Concomitant]
     Active Substance: CALCIUM CARBONATE
     Dosage: UNK, MONTHLY
  8. OMEPRAZOLE. [Concomitant]
     Active Substance: OMEPRAZOLE
     Indication: ACID BASE BALANCE
     Dosage: 20 MG, UNK
     Route: 048
  9. ACID REDUCER [Concomitant]
     Active Substance: CIMETIDINE\FAMOTIDINE\RANITIDINE HYDROCHLORIDE
     Indication: ABDOMINAL DISTENSION

REACTIONS (10)
  - Product use issue [Unknown]
  - Pain [Unknown]
  - Hyperhidrosis [Recovering/Resolving]
  - Cardiac discomfort [Recovering/Resolving]
  - Tachycardia [Recovering/Resolving]
  - Musculoskeletal pain [Recovering/Resolving]
  - Anxiety [Unknown]
  - Chest pain [Recovering/Resolving]
  - Local swelling [Recovering/Resolving]
  - Tracheal pain [Recovering/Resolving]

NARRATIVE: CASE EVENT DATE: 20150414
